FAERS Safety Report 9460242 (Version 1)
Quarter: 2013Q3

REPORT INFORMATION
  Report Type: Spontaneous
  Country: IT (occurrence: IT)
  Receive Date: 20130815
  Receipt Date: 20130815
  Transmission Date: 20140515
  Serious: Yes (Other)
  Sender: FDA-Public Use
  Company Number: IT-TEVA-423990ISR

PATIENT
  Age: 61 Year
  Sex: Male
  Weight: 75 kg

DRUGS (6)
  1. CARBOPLATINO TEVA [Suspect]
     Indication: LUNG NEOPLASM MALIGNANT
     Dosage: 553.6MG, CYCLICAL
     Route: 042
     Dates: start: 20121004, end: 20121004
  2. PACLITAXEL TEVA [Suspect]
     Indication: LUNG NEOPLASM MALIGNANT
     Dosage: 322MG, CYCLICAL, CONCENTRATE FOR SOLUTION FOR INTRAVENOUS INFUSION
     Route: 042
     Dates: start: 20121004, end: 20121004
  3. AVASTIN [Suspect]
     Indication: LUNG NEOPLASM MALIGNANT
     Dosage: 562.6MG, CYCLICAL, CONCENTRATE FOR SOLUTION FOR INTRAVENOUS INFUSION
     Route: 042
     Dates: start: 20121004, end: 20121004
  4. RANIDIL [Concomitant]
     Dosage: 50 MILLIGRAM DAILY;
     Route: 042
     Dates: start: 20121004, end: 20121004
  5. SOLDESAM [Concomitant]
     Dosage: 8 MILLIGRAM DAILY;
     Route: 042
     Dates: start: 20121004, end: 20121004
  6. ONDANSETRONE HIKMA [Concomitant]
     Dosage: 8 MILLIGRAM DAILY;
     Route: 042
     Dates: start: 20121004, end: 20121004

REACTIONS (4)
  - Asthenia [Unknown]
  - Somnolence [Unknown]
  - Dyspnoea [Unknown]
  - Stomatitis [Unknown]
